FAERS Safety Report 9993678 (Version 3)
Quarter: 2014Q2

REPORT INFORMATION
  Report Type: Spontaneous
  Country: JP (occurrence: JP)
  Receive Date: 20140310
  Receipt Date: 20140425
  Transmission Date: 20141212
  Serious: Yes (Other)
  Sender: FDA-Public Use
  Company Number: JP-SUCAMPO PHARMA AMERICAS, INC-SPI201400157

PATIENT
  Age: 73 Year
  Sex: Female
  Weight: 52.4 kg

DRUGS (9)
  1. AMITIZA [Suspect]
     Indication: CONSTIPATION
     Dosage: 24 MCG, BID
     Route: 048
     Dates: start: 20140131, end: 20140131
  2. SOLANAX [Concomitant]
     Indication: PSYCHOSOMATIC DISEASE
     Dosage: 0.4 MG, BID
     Route: 048
  3. OMEPRAZOLE [Concomitant]
     Indication: GASTROOESOPHAGEAL REFLUX DISEASE
     Dosage: 10 MG, QD
     Route: 048
     Dates: start: 20120615
  4. KALLIDINOGENASE [Concomitant]
     Indication: LUMBAR SPINAL STENOSIS
     Dosage: 50 UT, TID
     Route: 048
     Dates: start: 20090731
  5. EDIROL [Concomitant]
     Indication: OSTEOPOROSIS
     Dosage: 0.5 MCG, QD
     Route: 048
  6. MAGLAX [Concomitant]
     Indication: CONSTIPATION
     Dosage: 500 MG, TID
     Route: 048
  7. UNKNOWN DRUG [Concomitant]
     Indication: GASTRITIS
     Dosage: 5 MG, BID
     Route: 048
  8. ATORVASTATIN [Concomitant]
     Indication: HYPERCHOLESTEROLAEMIA
     Dosage: 10 MG, QD
     Route: 048
     Dates: start: 20060110
  9. UNKNOWN DRUG [Concomitant]
     Indication: LUMBAR SPINAL STENOSIS
     Dosage: 5 MCG, TID
     Route: 048
     Dates: start: 20130731

REACTIONS (7)
  - Blood pressure decreased [Recovered/Resolved]
  - Feeling abnormal [Recovered/Resolved]
  - Malaise [Recovered/Resolved]
  - Vomiting [Recovered/Resolved]
  - Feeling cold [Recovered/Resolved]
  - Dizziness [Recovered/Resolved]
  - Nausea [Recovered/Resolved]
